FAERS Safety Report 15494599 (Version 3)
Quarter: 2019Q4

REPORT INFORMATION
  Report Type: Spontaneous
  Country: GB (occurrence: GB)
  Receive Date: 20181012
  Receipt Date: 20191129
  Transmission Date: 20200122
  Serious: Yes (Hospitalization, Other)
  Sender: FDA-Public Use
  Company Number: GB-ASTRAZENECA-2017SF31444

PATIENT
  Age: 59 Year
  Sex: Female

DRUGS (3)
  1. COPAXONE [Suspect]
     Active Substance: GLATIRAMER ACETATE
     Indication: MULTIPLE SCLEROSIS
     Route: 058
     Dates: start: 20160822
  2. RANITIDINE. [Concomitant]
     Active Substance: RANITIDINE
  3. ESOMEPRAZOLE. [Suspect]
     Active Substance: ESOMEPRAZOLE MAGNESIUM
     Route: 048

REACTIONS (3)
  - Abdominal distension [Not Recovered/Not Resolved]
  - Gastric disorder [Unknown]
  - Cholecystectomy [Not Recovered/Not Resolved]

NARRATIVE: CASE EVENT DATE: 2017
